FAERS Safety Report 20431105 (Version 2)
Quarter: 2022Q1

REPORT INFORMATION
  Report Type: Spontaneous
  Country: BE (occurrence: BE)
  Receive Date: 20220204
  Receipt Date: 20220309
  Transmission Date: 20220423
  Serious: Yes (Hospitalization, Other)
  Sender: FDA-Public Use
  Company Number: BE-ORGANON-O2108BEL000573

PATIENT
  Age: 24 Year
  Sex: Female

DRUGS (1)
  1. ETONOGESTREL [Suspect]
     Active Substance: ETONOGESTREL
     Dosage: 1 IMPLANT IN THE ARM (LEFT UPPER ARM)(NON-DOMINANT ARM)
     Route: 059
     Dates: start: 20181009, end: 20211119

REACTIONS (5)
  - Complication of device removal [Recovered/Resolved]
  - General anaesthesia [Unknown]
  - Device issue [Recovered/Resolved]
  - Device placement issue [Recovered/Resolved]
  - Incorrect product administration duration [Unknown]

NARRATIVE: CASE EVENT DATE: 20181009
